FAERS Safety Report 4732461-2 (Version None)
Quarter: 2005Q3

REPORT INFORMATION
  Report Type: 
  Country: None (occurrence: None)
  Receive Date: 20050801
  Receipt Date: 20050718
  Transmission Date: 20060218
  Serious: Yes (Other)
  Sender: FDA-Public Use
  Company Number: 2005039618

PATIENT
  Sex: Male

DRUGS (8)
  1. VIAGRA [Suspect]
     Indication: NOCTURIA
     Dosage: 4 MG (4 MG 1 IN 1 D) ORAL
     Route: 048
     Dates: start: 19980101
  2. DETROL LA [Suspect]
     Indication: NOCTURIA
     Dosage: 4 MG (4 MG 1 IN 1 D) ORAL
     Route: 048
     Dates: start: 20040101
  3. CARDURA [Suspect]
     Indication: BENIGN PROSTATIC HYPERPLASIA
     Dosage: 4 MG
  4. TAMSULOSIN HCL [Suspect]
  5. UROXATRAL [Suspect]
  6. ACETYLSALICYLIC ACID SRT [Concomitant]
  7. LOTENSIN [Concomitant]
  8. PLENDIL [Concomitant]

REACTIONS (28)
  - ABDOMINAL DISCOMFORT [None]
  - ABDOMINAL PAIN LOWER [None]
  - ASTHENIA [None]
  - BENIGN PROSTATIC HYPERPLASIA [None]
  - BLADDER NECK OBSTRUCTION [None]
  - BLOOD TESTOSTERONE DECREASED [None]
  - CONDITION AGGRAVATED [None]
  - CONSTIPATION [None]
  - DISEASE RECURRENCE [None]
  - DRUG INEFFECTIVE [None]
  - DYSURIA [None]
  - GASTROINTESTINAL DISORDER [None]
  - GROIN PAIN [None]
  - HYPERTONIC BLADDER [None]
  - INGUINAL HERNIA [None]
  - MEMORY IMPAIRMENT [None]
  - MICTURITION URGENCY [None]
  - MUSCULOSKELETAL DISCOMFORT [None]
  - NOCTURIA [None]
  - POST PROCEDURAL COMPLICATION [None]
  - PROSTATE CANCER STAGE I [None]
  - PROSTATIC SPECIFIC ANTIGEN INCREASED [None]
  - PROSTATISM [None]
  - PROSTATITIS [None]
  - REFUSAL OF TREATMENT BY PATIENT [None]
  - THERAPY NON-RESPONDER [None]
  - URINARY TRACT DISORDER [None]
  - URINE FLOW DECREASED [None]
